FAERS Safety Report 15346027 (Version 3)
Quarter: 2019Q1

REPORT INFORMATION
  Report Type: Report from Study
  Country: FR (occurrence: FR)
  Receive Date: 20180904
  Receipt Date: 20190212
  Transmission Date: 20190417
  Serious: Yes (Death, Hospitalization)
  Sender: FDA-Public Use
  Company Number: FR-ROCHE-2178572

PATIENT
  Sex: Male
  Weight: 85 kg

DRUGS (9)
  1. ATEZOLIZUMAB. [Suspect]
     Active Substance: ATEZOLIZUMAB
     Route: 042
     Dates: start: 20180918, end: 20180918
  2. ROGARATINIB [Suspect]
     Active Substance: ROGARATINIB
     Indication: TRANSITIONAL CELL CARCINOMA
     Route: 048
     Dates: start: 20180807, end: 20181001
  3. ROGARATINIB [Suspect]
     Active Substance: ROGARATINIB
     Route: 048
     Dates: start: 20180828, end: 20180910
  4. ATEZOLIZUMAB. [Suspect]
     Active Substance: ATEZOLIZUMAB
     Indication: TRANSITIONAL CELL CARCINOMA
     Route: 042
     Dates: start: 20180807, end: 20180807
  5. ATEZOLIZUMAB. [Suspect]
     Active Substance: ATEZOLIZUMAB
     Route: 042
     Dates: start: 20180828, end: 20180828
  6. ROGARATINIB [Suspect]
     Active Substance: ROGARATINIB
     Route: 048
     Dates: start: 20180911, end: 20180917
  7. ROGARATINIB [Suspect]
     Active Substance: ROGARATINIB
     Route: 048
     Dates: start: 20180918
  8. ROGARATINIB [Suspect]
     Active Substance: ROGARATINIB
     Route: 048
     Dates: start: 20180824, end: 20180824
  9. ROGARATINIB [Suspect]
     Active Substance: ROGARATINIB
     Route: 048
     Dates: start: 20181002, end: 20181002

REACTIONS (1)
  - Renal function test abnormal [Recovered/Resolved]

NARRATIVE: CASE EVENT DATE: 20180825
